FAERS Safety Report 5485140-0 (Version None)
Quarter: 2007Q4

REPORT INFORMATION
  Report Type: 
  Country: None (occurrence: None)
  Receive Date: 20071015
  Receipt Date: 20071003
  Transmission Date: 20080405
  Serious: Yes (Hospitalization)
  Sender: FDA-Public Use
  Company Number: US-ABBOTT-07P-163-0419477-00

PATIENT
  Sex: Male
  Weight: 109.5 kg

DRUGS (5)
  1. HUMIRA [Suspect]
     Indication: RHEUMATOID ARTHRITIS
     Route: 058
     Dates: start: 20050101, end: 20070918
  2. HUMIRA [Suspect]
     Indication: RHEUMATOID ARTHRITIS
     Route: 058
     Dates: start: 20070918
  3. MORPHINE SULFATE [Suspect]
     Indication: PAIN
  4. VICODIN [Suspect]
     Indication: PAIN
  5. METHOTREXATE [Concomitant]
     Indication: RHEUMATOID ARTHRITIS

REACTIONS (4)
  - FAECALOMA [None]
  - ILEUS [None]
  - INJECTION SITE PAIN [None]
  - SMALL INTESTINAL OBSTRUCTION [None]
